FAERS Safety Report 23420131 (Version 1)
Quarter: 2024Q1

REPORT INFORMATION
  Report Type: Other
  Country: US (occurrence: None)
  Receive Date: 20240119
  Receipt Date: 20240119
  Transmission Date: 20240410
  Serious: Yes (Other)
  Sender: FDA-Public Use
  Company Number: US-ROCHE-3493334

PATIENT

DRUGS (3)
  1. ATEZOLIZUMAB [Suspect]
     Active Substance: ATEZOLIZUMAB
     Indication: Inflammatory carcinoma of the breast
     Route: 065
  2. COBIMETINIB [Suspect]
     Active Substance: COBIMETINIB
     Indication: Inflammatory carcinoma of the breast
     Route: 048
  3. ERIBULIN [Suspect]
     Active Substance: ERIBULIN
     Indication: Inflammatory carcinoma of the breast
     Route: 065

REACTIONS (7)
  - Neutrophil count decreased [Unknown]
  - White blood cell count decreased [Unknown]
  - Immune-mediated enterocolitis [Unknown]
  - Diarrhoea [Unknown]
  - Anaemia [Unknown]
  - Lymphocyte count decreased [Unknown]
  - Sepsis [Unknown]
